FAERS Safety Report 5811524-4 (Version None)
Quarter: 2008Q3

REPORT INFORMATION
  Report Type: 
  Country: None (occurrence: None)
  Receive Date: 20080716
  Receipt Date: 20080708
  Transmission Date: 20090109
  Serious: Yes (Hospitalization, Other)
  Sender: FDA-Public Use
  Company Number: US-MERCK-0707USA00490

PATIENT
  Age: 55 Year
  Sex: Female

DRUGS (15)
  1. FOSAMAX [Suspect]
     Route: 048
     Dates: start: 19980901, end: 20050901
  2. ESTRING [Concomitant]
     Indication: HORMONE REPLACEMENT THERAPY
     Route: 065
     Dates: start: 20040601, end: 20060401
  3. ALDACTONE [Concomitant]
     Route: 065
     Dates: start: 19990301, end: 20061001
  4. OXYCONTIN [Concomitant]
     Indication: PAIN
     Route: 065
  5. KLONOPIN [Concomitant]
     Route: 065
     Dates: start: 20031201, end: 20061001
  6. METRONIDAZOLE [Concomitant]
     Indication: INFECTION
     Route: 065
     Dates: end: 20040301
  7. PROSCAR [Concomitant]
     Route: 065
     Dates: start: 19991101, end: 20060401
  8. MIRALAX [Concomitant]
     Indication: CONSTIPATION
     Route: 065
     Dates: end: 20040101
  9. ZELNORM [Concomitant]
     Indication: CONSTIPATION
     Route: 065
     Dates: start: 20050601, end: 20051001
  10. AMITIZA [Concomitant]
     Indication: CONSTIPATION
     Route: 065
     Dates: start: 20060901, end: 20061001
  11. FORTEO [Concomitant]
     Indication: OSTEOPOROSIS
     Route: 065
     Dates: start: 20051001, end: 20060901
  12. PREMARIN [Concomitant]
     Indication: HORMONE REPLACEMENT THERAPY
     Route: 065
     Dates: start: 20000601, end: 20010201
  13. [THERAPY UNSPECIFIED] [Concomitant]
     Route: 065
  14. MEDROXYPROGESTERONE ACETATE [Suspect]
     Route: 065
  15. ESTRADIOL [Suspect]
     Route: 065

REACTIONS (21)
  - ADVERSE DRUG REACTION [None]
  - ANXIETY [None]
  - BACK INJURY [None]
  - DENTAL CARIES [None]
  - DEPRESSION [None]
  - DIZZINESS [None]
  - FACE INJURY [None]
  - FALL [None]
  - HYPOAESTHESIA [None]
  - INCREASED APPETITE [None]
  - MOUTH INJURY [None]
  - OSTEOMYELITIS [None]
  - OSTEONECROSIS [None]
  - PAIN [None]
  - RESORPTION BONE INCREASED [None]
  - ROAD TRAFFIC ACCIDENT [None]
  - SPINAL CORD DISORDER [None]
  - TOOTH ABSCESS [None]
  - TOOTHACHE [None]
  - URINARY TRACT INFECTION [None]
  - WEIGHT INCREASED [None]
